FAERS Safety Report 5970885-6 (Version None)
Quarter: 2008Q4

REPORT INFORMATION
  Report Type: 
  Country: None (occurrence: None)
  Receive Date: 20081128
  Receipt Date: 20081117
  Transmission Date: 20090506
  Serious: Yes (Other)
  Sender: FDA-Public Use
  Company Number: PHHY2008IT09994

PATIENT
  Sex: Female

DRUGS (2)
  1. EXJADE [Suspect]
     Indication: IRON OVERLOAD
     Dosage: 20 MG/KG, UNK
     Route: 048
     Dates: start: 20071015, end: 20080205
  2. EXJADE [Suspect]
     Dosage: 10 MG/KG, UNK
     Route: 048
     Dates: start: 20080206

REACTIONS (6)
  - BLOOD CREATININE INCREASED [None]
  - BLOOD URINE PRESENT [None]
  - CREATININE RENAL CLEARANCE DECREASED [None]
  - GLYCOSURIA [None]
  - HAEMOGLOBIN DECREASED [None]
  - PROTEINURIA [None]
